FAERS Safety Report 18010231 (Version 3)
Quarter: 2021Q3

REPORT INFORMATION
  Report Type: Report from Study
  Country: IT (occurrence: IT)
  Receive Date: 20200710
  Receipt Date: 20210730
  Transmission Date: 20211014
  Serious: Yes (Other)
  Sender: FDA-Public Use
  Company Number: IT-INCYTE CORPORATION-2018IN005694

PATIENT

DRUGS (3)
  1. JAKAVI [Suspect]
     Active Substance: RUXOLITINIB
     Dosage: 30, DAILY DOSE
     Route: 048
     Dates: start: 20180904
  2. JAKAVI [Suspect]
     Active Substance: RUXOLITINIB
     Indication: MYELOFIBROSIS
     Dosage: 10, DAILY DOSE
     Route: 048
     Dates: start: 20170925, end: 20171109
  3. JAKAVI [Suspect]
     Active Substance: RUXOLITINIB
     Dosage: 10, DAILY DOSE
     Route: 048
     Dates: start: 20171129, end: 20180903

REACTIONS (12)
  - Dyspepsia [Unknown]
  - Hepatic steatosis [Unknown]
  - Thrombocytopenia [Not Recovered/Not Resolved]
  - Haematoma [Recovered/Resolved]
  - Myalgia [Unknown]
  - Tooth abscess [Unknown]
  - Ecchymosis [Unknown]
  - Hypertensive crisis [Recovered/Resolved]
  - Asthenia [Unknown]
  - Epistaxis [Unknown]
  - Anaemia [Unknown]
  - Ecchymosis [Recovered/Resolved]

NARRATIVE: CASE EVENT DATE: 20171110
